FAERS Safety Report 25462702 (Version 1)
Quarter: 2025Q2

REPORT INFORMATION
  Report Type: Spontaneous
  Country: FR (occurrence: FR)
  Receive Date: 20250620
  Receipt Date: 20250620
  Transmission Date: 20250717
  Serious: Yes (Hospitalization, Other)
  Sender: PFIZER
  Company Number: None

PATIENT
  Age: 61 Year
  Sex: Female

DRUGS (2)
  1. XALKORI [Suspect]
     Active Substance: CRIZOTINIB
     Indication: Bronchial carcinoma
     Dosage: 2 DF, 1X/DAY
     Route: 048
     Dates: start: 20240104, end: 20240112
  2. BROMAZEPAM [Concomitant]
     Active Substance: BROMAZEPAM
     Dates: start: 20231224

REACTIONS (5)
  - Rash maculo-papular [Recovered/Resolved]
  - Malignant pleural effusion [Unknown]
  - Acute kidney injury [Unknown]
  - C-reactive protein increased [Unknown]
  - Lymphopenia [Unknown]

NARRATIVE: CASE EVENT DATE: 20240112
